FAERS Safety Report 4292275-7 (Version None)
Quarter: 2004Q1

REPORT INFORMATION
  Report Type: 
  Country: None (occurrence: None)
  Receive Date: 20040211
  Receipt Date: 20011012
  Transmission Date: 20041129
  Serious: Yes (Hospitalization)
  Sender: FDA-Public Use
  Company Number: BE-ROCHE-269750

PATIENT
  Age: 65 Year
  Sex: Female
  Weight: 80 kg

DRUGS (6)
  1. DACLIZUMAB [Suspect]
     Route: 042
     Dates: start: 20011002, end: 20011123
  2. DACLIZUMAB [Suspect]
     Route: 042
     Dates: start: 20010928, end: 20010928
  3. MYCOPHENOLATE MOFETIL [Suspect]
     Route: 048
     Dates: start: 20010929, end: 20011223
  4. MYCOPHENOLATE MOFETIL [Suspect]
     Route: 048
     Dates: start: 20011224
  5. NEORAL [Concomitant]
     Dates: start: 20011011, end: 20011227
  6. DELTACORTRIL [Concomitant]
     Dates: start: 20011014, end: 20011227

REACTIONS (3)
  - ESCHERICHIA INFECTION [None]
  - SEPSIS [None]
  - URINARY TRACT INFECTION [None]
